FAERS Safety Report 8270594-7 (Version None)
Quarter: 2012Q2

REPORT INFORMATION
  Report Type: 
  Country: None (occurrence: None)
  Receive Date: 20120406
  Receipt Date: 20120322
  Transmission Date: 20120825
  Serious: Yes (Death)
  Sender: FDA-Public Use
  Company Number: FK201200592

PATIENT
  Age: 6 Month
  Sex: Female

DRUGS (17)
  1. CALCIUM CHLORIDE (CALCIUM CHLORIDE DIHYDRATE) (CALCIUM CHLORIDE DIHYDR [Suspect]
     Dosage: INTRAVENOUS (NOT OTHERWISE SPECIFIED)
     Route: 042
  2. SODIUM GLYCEROPHOSPHATE (MANUFACTURER UNKNOWN) (SODIUM GLYCEROPHOSPHAT [Suspect]
     Indication: ELECTROLYTE IMBALANCE
     Dates: start: 20120226, end: 20120226
  3. SODIUM GLYCEROPHOSPHATE (MANUFACTURER UNKNOWN) (SODIUM GLYCEROPHOSPHAT [Suspect]
     Indication: MAGNESIUM DEFICIENCY
     Dates: start: 20120226, end: 20120226
  4. SODIUM GLYCEROPHOSPHATE (MANUFACTURER UNKNOWN) (SODIUM GLYCEROPHOSPHAT [Suspect]
     Indication: BLOOD SODIUM DECREASED
     Dates: start: 20120226, end: 20120226
  5. SODIUM GLYCEROPHOSPHATE (MANUFACTURER UNKNOWN) (SODIUM GLYCEROPHOSPHAT [Suspect]
     Indication: BLOOD PHOSPHORUS DECREASED
     Dates: start: 20120226, end: 20120226
  6. MAGNESIUM SULFATE (MANUFACTURER UNKNOWN) (AMINO ACIDS, MAGNESIUM SULFA [Suspect]
     Indication: BLOOD SODIUM DECREASED
     Dosage: INTRAVENOUS (NT OTHERWISE SPECIFIED)
     Route: 042
     Dates: start: 20120226, end: 20120226
  7. MAGNESIUM SULFATE (MANUFACTURER UNKNOWN) (AMINO ACIDS, MAGNESIUM SULFA [Suspect]
     Indication: ELECTROLYTE IMBALANCE
     Dosage: INTRAVENOUS (NT OTHERWISE SPECIFIED)
     Route: 042
     Dates: start: 20120226, end: 20120226
  8. MAGNESIUM SULFATE (MANUFACTURER UNKNOWN) (AMINO ACIDS, MAGNESIUM SULFA [Suspect]
     Indication: MAGNESIUM DEFICIENCY
     Dosage: INTRAVENOUS (NT OTHERWISE SPECIFIED)
     Route: 042
     Dates: start: 20120226, end: 20120226
  9. MAGNESIUM SULFATE (MANUFACTURER UNKNOWN) (AMINO ACIDS, MAGNESIUM SULFA [Suspect]
     Indication: BLOOD PHOSPHORUS DECREASED
     Dosage: INTRAVENOUS (NT OTHERWISE SPECIFIED)
     Route: 042
     Dates: start: 20120226, end: 20120226
  10. POTASSIUM CHLORIDE [Suspect]
     Indication: BLOOD PHOSPHORUS DECREASED
     Dosage: INTRAVENOUS (NOT OTHERWISE SPECIFIED)
     Route: 042
     Dates: start: 20120226, end: 20120226
  11. POTASSIUM CHLORIDE [Suspect]
     Indication: MAGNESIUM DEFICIENCY
     Dosage: INTRAVENOUS (NOT OTHERWISE SPECIFIED)
     Route: 042
     Dates: start: 20120226, end: 20120226
  12. POTASSIUM CHLORIDE [Suspect]
     Indication: ELECTROLYTE IMBALANCE
     Dosage: INTRAVENOUS (NOT OTHERWISE SPECIFIED)
     Route: 042
     Dates: start: 20120226, end: 20120226
  13. POTASSIUM CHLORIDE [Suspect]
     Indication: BLOOD SODIUM DECREASED
     Dosage: INTRAVENOUS (NOT OTHERWISE SPECIFIED)
     Route: 042
     Dates: start: 20120226, end: 20120226
  14. SODIUM CHLORIDE [Suspect]
     Indication: ELECTROLYTE IMBALANCE
     Dosage: INTRAVENOUS (NOT OTHERWISE)
     Route: 042
     Dates: start: 20120226, end: 20120226
  15. SODIUM CHLORIDE [Suspect]
     Indication: BLOOD SODIUM DECREASED
     Dosage: INTRAVENOUS (NOT OTHERWISE)
     Route: 042
     Dates: start: 20120226, end: 20120226
  16. SODIUM CHLORIDE [Suspect]
     Indication: BLOOD MAGNESIUM
     Dosage: INTRAVENOUS (NOT OTHERWISE)
     Route: 042
     Dates: start: 20120226, end: 20120226
  17. SODIUM CHLORIDE [Suspect]
     Indication: BLOOD PHOSPHORUS DECREASED
     Dosage: INTRAVENOUS (NOT OTHERWISE)
     Route: 042
     Dates: start: 20120226, end: 20120226

REACTIONS (3)
  - DYSPNOEA [None]
  - CARDIAC ARREST [None]
  - UNRESPONSIVE TO STIMULI [None]
